FAERS Safety Report 8133826-1 (Version None)
Quarter: 2012Q1

REPORT INFORMATION
  Report Type: 
  Country: None (occurrence: None)
  Receive Date: 20120213
  Receipt Date: 20120213
  Transmission Date: 20120608
  Serious: No
  Sender: FDA-Public Use
  Company Number: None

PATIENT
  Sex: Female
  Weight: 58.967 kg

DRUGS (1)
  1. MICONAZOLE NITRATE [Suspect]
     Indication: FUNGAL INFECTION
     Dosage: 1200MG`
     Route: 067

REACTIONS (3)
  - PRODUCT DOSAGE FORM ISSUE [None]
  - APPLICATION SITE PAIN [None]
  - APPLICATION SITE DISCOMFORT [None]
